FAERS Safety Report 7451170-2 (Version None)
Quarter: 2011Q2

REPORT INFORMATION
  Report Type: 
  Country: None (occurrence: None)
  Receive Date: 20110502
  Receipt Date: 20110426
  Transmission Date: 20111010
  Serious: Yes (Life-Threatening, Hospitalization, Disabling)
  Sender: FDA-Public Use
  Company Number: PHHY2010FR89567

PATIENT
  Sex: Male
  Weight: 70.8 kg

DRUGS (1)
  1. TASIGNA [Suspect]
     Indication: CHRONIC MYELOID LEUKAEMIA
     Dosage: 400 MG, BID
     Route: 048

REACTIONS (4)
  - CEREBROVASCULAR ACCIDENT [None]
  - SOMNOLENCE [None]
  - HEMIPLEGIA [None]
  - APHASIA [None]
